FAERS Safety Report 5023072-2 (Version None)
Quarter: 2006Q2

REPORT INFORMATION
  Report Type: 
  Country: None (occurrence: None)
  Receive Date: 20060502
  Receipt Date: 20050425
  Transmission Date: 20061013
  Serious: Yes (Other)
  Sender: FDA-Public Use
  Company Number: PHEH2005US04849

PATIENT
  Age: 68 Year
  Sex: Female
  Weight: 81.2 kg

DRUGS (5)
  1. LOTREL [Suspect]
     Indication: HYPERTENSION
     Dosage: 10 AML/20MG BEN QD, ORAL
     Route: 048
     Dates: start: 20030101
  2. DIOVAN HCT [Suspect]
     Indication: HYPERTENSION
     Dosage: 160MG VAL/12.5MG HCTZ, QD, ORAL
     Route: 048
     Dates: start: 20030101
  3. STARLIX [Suspect]
     Indication: DIABETES MELLITUS
     Dosage: QD, ORAL
     Route: 048
     Dates: start: 20040101
  4. FOLTX (CYANOCOBALAMIN, FOLIC ACID, PYRIDOXINE) [Concomitant]
  5. TOPROL-XL [Concomitant]

REACTIONS (2)
  - ALANINE AMINOTRANSFERASE INCREASED [None]
  - ASPARTATE AMINOTRANSFERASE INCREASED [None]
